FAERS Safety Report 20476405 (Version 2)
Quarter: 2022Q4

REPORT INFORMATION
  Report Type: Other
  Country: US (occurrence: None)
  Receive Date: 20220215
  Receipt Date: 20221109
  Transmission Date: 20230112
  Serious: Yes (Hospitalization)
  Sender: FDA-Public Use
  Company Number: US-ROCHE-3018377

PATIENT
  Age: 40 Year
  Sex: Female

DRUGS (1)
  1. OCREVUS [Suspect]
     Active Substance: OCRELIZUMAB
     Indication: Relapsing multiple sclerosis
     Dosage: 300MG AT WEEK 0 AND WEEK 2 THEN EVERY 6 MONTHS, DATE OF SERVICE: 19/JUN/2021, 25/FEB/2022
     Route: 042
     Dates: start: 20210119

REACTIONS (1)
  - COVID-19 pneumonia [Unknown]
